FAERS Safety Report 5074368-X (Version None)
Quarter: 2006Q3

REPORT INFORMATION
  Report Type: 
  Country: None (occurrence: None)
  Receive Date: 20060803
  Receipt Date: 20060720
  Transmission Date: 20061208
  Serious: Yes (Hospitalization)
  Sender: FDA-Public Use
  Company Number: 430001E06GBR

PATIENT
  Age: 54 Year
  Sex: Female

DRUGS (3)
  1. NOVANTRONE [Suspect]
     Dosage: ONCE
     Dates: start: 20060116
  2. GEMTUZUMAB OZOGAMICIN (GEMTUZUMAB OZOGAMICIN) [Suspect]
     Dosage: ONCE
     Dates: start: 20060116
  3. TRETINOIN [Suspect]
     Dosage: ONCE
     Dates: start: 20060116

REACTIONS (6)
  - HAEMATOCRIT DECREASED [None]
  - HAEMOGLOBIN DECREASED [None]
  - LYMPHOCYTE COUNT DECREASED [None]
  - NEUTROPENIC SEPSIS [None]
  - PLATELET COUNT DECREASED [None]
  - RED BLOOD CELL COUNT DECREASED [None]
